FAERS Safety Report 4458582-X (Version None)
Quarter: 2004Q3

REPORT INFORMATION
  Report Type: 
  Country: None (occurrence: None)
  Receive Date: 20040917
  Receipt Date: 20030915
  Transmission Date: 20050211
  Serious: Yes (Hospitalization)
  Sender: FDA-Public Use
  Company Number: US-JNJFOC-20030903596

PATIENT
  Age: 50 Year
  Sex: Female
  Weight: 68.0396 kg

DRUGS (5)
  1. TOPAMAX [Suspect]
     Indication: MIGRAINE
     Dosage: 50 MG, IN 1 DAY, ORAL
     Route: 048
  2. CELEXA [Concomitant]
  3. KLONOPIN [Concomitant]
  4. ANTIINFLAMMATORY (ANTIINFLAMMATORY/ANTIRHEUMATIC PRODUCTS) [Concomitant]
  5. FLEXERIL [Concomitant]

REACTIONS (1)
  - MANIA [None]
